FAERS Safety Report 24788588 (Version 1)
Quarter: 2024Q4

REPORT INFORMATION
  Report Type: Spontaneous
  Country: TW (occurrence: TW)
  Receive Date: 20241230
  Receipt Date: 20241230
  Transmission Date: 20250115
  Serious: Yes (Hospitalization, Other)
  Sender: ACCORD
  Company Number: TW-Accord-461676

PATIENT
  Age: 62 Year
  Sex: Female

DRUGS (4)
  1. BORTEZOMIB [Suspect]
     Active Substance: BORTEZOMIB
     Indication: Pleural effusion
     Dosage: ON DAYS 1 AND 4
     Route: 034
  2. THALIDOMIDE [Concomitant]
     Active Substance: THALIDOMIDE
     Indication: Pleural effusion
  3. DEXAMETHASONE [Concomitant]
     Active Substance: DEXAMETHASONE
     Indication: Pleural effusion
  4. BORTEZOMIB [Suspect]
     Active Substance: BORTEZOMIB
     Indication: Pleural effusion
     Dosage: ON DAYS 1 AND 4
     Route: 058

REACTIONS (4)
  - Diarrhoea [Recovered/Resolved]
  - Rash maculo-papular [Recovered/Resolved]
  - Thrombocytopenia [Recovered/Resolved]
  - Toxicity to various agents [Unknown]
